FAERS Safety Report 8958152 (Version 7)
Quarter: 2013Q3

REPORT INFORMATION
  Report Type: Spontaneous
  Country: US (occurrence: US)
  Receive Date: 20121211
  Receipt Date: 20130902
  Transmission Date: 20140515
  Serious: No
  Sender: FDA-Public Use
  Company Number: US-009507513-1212USA003466

PATIENT
  Age: 73 Year
  Sex: Female

DRUGS (3)
  1. ZIOPTAN [Suspect]
     Indication: INTRAOCULAR PRESSURE TEST
     Dosage: 1 GTT, RIGHT EYE, ONCE DAILY
     Route: 031
     Dates: start: 20121113, end: 201305
  2. COSOPT [Suspect]
     Route: 047
  3. LEVOXYL [Concomitant]

REACTIONS (10)
  - Urinary tract infection [Unknown]
  - Drug ineffective [Unknown]
  - Adverse event [Unknown]
  - Alopecia [Not Recovered/Not Resolved]
  - Erythema [Unknown]
  - Accidental exposure to product [Unknown]
  - Oropharyngeal pain [Unknown]
  - Cystitis [Unknown]
  - Fatigue [Unknown]
  - Fungal infection [Not Recovered/Not Resolved]
